APPROVED DRUG PRODUCT: PHENTERMINE HYDROCHLORIDE
Active Ingredient: PHENTERMINE HYDROCHLORIDE
Strength: 30MG
Dosage Form/Route: CAPSULE;ORAL
Application: A040427 | Product #001
Applicant: ABLE LABORATORIES INC
Approved: Aug 30, 2001 | RLD: No | RS: No | Type: DISCN